FAERS Safety Report 4322546-7 (Version None)
Quarter: 2004Q1

REPORT INFORMATION
  Report Type: 
  Country: None (occurrence: None)
  Receive Date: 20040322
  Receipt Date: 20040322
  Transmission Date: 20041129
  Serious: Yes (Other)
  Sender: FDA-Public Use
  Company Number: None

PATIENT
  Age: 56 Year
  Sex: Male
  Weight: 72.6 kg

DRUGS (6)
  1. AZITHROMYCIN [Suspect]
  2. CITALOPRAM HYDROBROMIDE [Concomitant]
  3. QUETIAPINE FUMARATE [Concomitant]
  4. AZITHROMYCIN [Concomitant]
  5. GG 600/PSEUDOEPHEDRINE [Concomitant]
  6. OXYCODONE HCL [Concomitant]

REACTIONS (1)
  - URTICARIA [None]
